FAERS Safety Report 9426300 (Version 1)
Quarter: 2013Q3

REPORT INFORMATION
  Report Type: Spontaneous
  Country: AR (occurrence: AR)
  Receive Date: 20130730
  Receipt Date: 20130730
  Transmission Date: 20140515
  Serious: Yes (Hospitalization, Other)
  Sender: FDA-Public Use
  Company Number: AR-AMGEN-ARGSP2013053345

PATIENT
  Age: 49 Year
  Sex: Female

DRUGS (1)
  1. ENBREL [Suspect]
     Indication: RHEUMATOID ARTHRITIS
     Dosage: 50 MG, WEEKLY
     Route: 065
     Dates: start: 20111220

REACTIONS (4)
  - Decreased immune responsiveness [Recovered/Resolved]
  - Pulmonary fibrosis [Recovered/Resolved]
  - Nervous system disorder [Recovered/Resolved]
  - Pneumonia [Recovered/Resolved]
